FAERS Safety Report 19050546 (Version 2)
Quarter: 2021Q2

REPORT INFORMATION
  Report Type: Report from Study
  Country: None (occurrence: DE)
  Receive Date: 20210324
  Receipt Date: 20210414
  Transmission Date: 20210717
  Serious: Yes (Other)
  Sender: FDA-Public Use
  Company Number: DE-ABBVIE-21K-062-3823601-00

PATIENT
  Age: 79 Year
  Sex: Female
  Weight: 74 kg

DRUGS (6)
  1. PANTOPRAZOL [Concomitant]
     Active Substance: PANTOPRAZOLE SODIUM
     Indication: PROPHYLAXIS
  2. PANTOPRAZOL [Concomitant]
     Active Substance: PANTOPRAZOLE SODIUM
     Indication: PROPHYLAXIS
     Route: 048
     Dates: start: 2018
  3. HUMIRA [Suspect]
     Active Substance: ADALIMUMAB
     Indication: UVEITIS
     Route: 058
     Dates: start: 2018, end: 2019
  4. EFEROX [Concomitant]
     Active Substance: LEVOTHYROXINE SODIUM
     Indication: HYPERTHYROIDISM
     Route: 048
     Dates: start: 2015
  5. DEXAMYTREX [Concomitant]
     Active Substance: DEXAMETHASONE SODIUM PHOSPHATE\GENTAMICIN SULFATE
     Indication: PRODUCT USED FOR UNKNOWN INDICATION
  6. ATROPIN [Concomitant]
     Active Substance: ATROPINE
     Indication: PRODUCT USED FOR UNKNOWN INDICATION
     Dosage: FOR THE RIGHT EYE

REACTIONS (28)
  - Red cell distribution width increased [Recovered/Resolved]
  - Blood thyroid stimulating hormone increased [Unknown]
  - Restless legs syndrome [Not Recovered/Not Resolved]
  - Mean cell volume increased [Recovered/Resolved]
  - White blood cell count decreased [Recovered/Resolved]
  - Hypertension [Not Recovered/Not Resolved]
  - Red blood cell count decreased [Recovered/Resolved]
  - Hepatic cirrhosis [Recovered/Resolved]
  - Diabetes mellitus [Not Recovered/Not Resolved]
  - Nervousness [Unknown]
  - Blood creatinine increased [Unknown]
  - Glycosylated haemoglobin increased [Recovered/Resolved]
  - Fluid retention [Not Recovered/Not Resolved]
  - Blood alkaline phosphatase increased [Recovered/Resolved]
  - White blood cell count decreased [Recovered/Resolved]
  - Chorioretinitis [Unknown]
  - Blood thyroid stimulating hormone increased [Recovered/Resolved]
  - Haematocrit decreased [Recovered/Resolved]
  - Blood glucose increased [Unknown]
  - Red blood cell count decreased [Unknown]
  - Glycosylated haemoglobin increased [Recovered/Resolved]
  - Mean cell volume increased [Recovered/Resolved]
  - Blood glucose increased [Recovered/Resolved]
  - Platelet count decreased [Unknown]
  - White blood cell count decreased [Unknown]
  - Mean cell volume increased [Recovered/Resolved]
  - Blood glucose increased [Recovered/Resolved]
  - Aspartate aminotransferase increased [Unknown]

NARRATIVE: CASE EVENT DATE: 2018
